FAERS Safety Report 7900700-2 (Version None)
Quarter: 2011Q4

REPORT INFORMATION
  Report Type: 
  Country: None (occurrence: None)
  Receive Date: 20111108
  Receipt Date: 20110823
  Transmission Date: 20120403
  Serious: Yes (Life-Threatening, Hospitalization, Disabling)
  Sender: FDA-Public Use
  Company Number: GB-TEVA-307953ISR

PATIENT
  Age: 63 Year
  Sex: Female
  Weight: 64 kg

DRUGS (3)
  1. COLCHICINE [Interacting]
     Indication: GOUT
     Dosage: 1000 MICROGRAM;
     Route: 048
     Dates: start: 20110224, end: 20110424
  2. CYCLOSPORINE [Interacting]
     Indication: RENAL TRANSPLANT
     Dosage: 150 MILLIGRAM;
     Route: 048
     Dates: end: 20110426
  3. CLARITHROMYCIN [Suspect]
     Indication: PNEUMONIA
     Dosage: 1000 MILLIGRAM;
     Dates: start: 20110423, end: 20110428

REACTIONS (14)
  - RENAL FAILURE ACUTE [None]
  - MALAISE [None]
  - ASTHENIA [None]
  - BLOOD CREATINE PHOSPHOKINASE INCREASED [None]
  - METABOLIC ACIDOSIS [None]
  - VOMITING [None]
  - DIARRHOEA [None]
  - BLOOD CALCIUM DECREASED [None]
  - DRUG INTERACTION [None]
  - PARAPARESIS [None]
  - NAUSEA [None]
  - GUILLAIN-BARRE SYNDROME [None]
  - PANCYTOPENIA [None]
  - NEUROPATHY PERIPHERAL [None]
